FAERS Safety Report 5913077-9 (Version None)
Quarter: 2008Q4

REPORT INFORMATION
  Report Type: 
  Country: None (occurrence: None)
  Receive Date: 20081008
  Receipt Date: 20081008
  Transmission Date: 20090506
  Serious: Yes (Other)
  Sender: FDA-Public Use
  Company Number: None

PATIENT
  Age: 50 Year
  Sex: Male
  Weight: 111.5849 kg

DRUGS (2)
  1. INDOMETHACIN 50MG CAP [Suspect]
     Indication: PAIN IN EXTREMITY
     Dosage: 2 CAPSULES DAILY
     Dates: start: 20080902, end: 20080920
  2. WINSTON LIGHT (ADDITIVE FREE) WINSTON-SALEM [Suspect]
     Indication: DRUG DEPENDENCE
     Dosage: AVG. 1 PACK DAILY
     Dates: start: 20060101, end: 20080101

REACTIONS (4)
  - ABDOMINAL DISTENSION [None]
  - FEELING ABNORMAL [None]
  - GASTRITIS [None]
  - PHARYNGITIS [None]
